FAERS Safety Report 12642798 (Version 1)
Quarter: 2016Q3

REPORT INFORMATION
  Report Type: Spontaneous
  Country: US (occurrence: US)
  Receive Date: 20160811
  Receipt Date: 20160811
  Transmission Date: 20161109
  Serious: No
  Sender: FDA-Public Use
  Company Number: US-JNJFOC-20160723180

PATIENT
  Age: 40 Year
  Sex: Female
  Weight: 65.77 kg

DRUGS (12)
  1. PEPCID [Suspect]
     Active Substance: FAMOTIDINE
     Indication: EYE SWELLING
     Route: 048
     Dates: start: 20160711
  2. BENADRYL [Concomitant]
     Active Substance: DIPHENHYDRAMINE HYDROCHLORIDE
     Indication: EYE IRRITATION
     Route: 065
  3. PREDNISONE. [Concomitant]
     Active Substance: PREDNISONE
     Indication: EYE IRRITATION
     Route: 065
  4. PEPCID [Suspect]
     Active Substance: FAMOTIDINE
     Indication: OCULAR HYPERAEMIA
     Route: 048
     Dates: start: 20160711
  5. BENADRYL [Concomitant]
     Active Substance: DIPHENHYDRAMINE HYDROCHLORIDE
     Indication: OCULAR HYPERAEMIA
     Route: 065
  6. BENADRYL [Concomitant]
     Active Substance: DIPHENHYDRAMINE HYDROCHLORIDE
     Indication: EYE PRURITUS
     Route: 065
  7. PREDNISONE. [Concomitant]
     Active Substance: PREDNISONE
     Indication: EYE SWELLING
     Route: 065
  8. PEPCID [Suspect]
     Active Substance: FAMOTIDINE
     Indication: EYE IRRITATION
     Route: 048
     Dates: start: 20160711
  9. BENADRYL [Concomitant]
     Active Substance: DIPHENHYDRAMINE HYDROCHLORIDE
     Indication: EYE SWELLING
     Route: 065
  10. PEPCID [Suspect]
     Active Substance: FAMOTIDINE
     Indication: EYE PRURITUS
     Route: 048
     Dates: start: 20160711
  11. PREDNISONE. [Concomitant]
     Active Substance: PREDNISONE
     Indication: EYE PRURITUS
     Route: 065
  12. PREDNISONE. [Concomitant]
     Active Substance: PREDNISONE
     Indication: OCULAR HYPERAEMIA
     Route: 065

REACTIONS (2)
  - Off label use [Unknown]
  - Product use issue [Unknown]

NARRATIVE: CASE EVENT DATE: 20160711
